FAERS Safety Report 8909458 (Version 1)
Quarter: 2012Q4

REPORT INFORMATION
  Report Type: Spontaneous
  Country: DK (occurrence: None)
  Receive Date: 20121109
  Receipt Date: 20121109
  Transmission Date: 20130627
  Serious: Yes (Hospitalization)
  Sender: FDA-Public Use
  Company Number: 2012MA013017

PATIENT
  Age: 58 Year
  Sex: Male

DRUGS (23)
  1. ISOSORBIDE [Suspect]
  2. ACETYLSALICYLIC ACID (ACETYLSALICYLIC ACID) [Suspect]
     Route: 048
  3. NICORANDIL (NICORANDIL) [Suspect]
     Route: 048
  4. ETANERCEPT [Suspect]
     Route: 058
     Dates: start: 20120420, end: 20120519
  5. ATORVASTATIN [Concomitant]
  6. LIRAGLUTIDE [Concomitant]
  7. AMLODIPINE [Concomitant]
  8. INSULIN [Concomitant]
  9. BISOPROLOL [Concomitant]
  10. CANDESARTAN [Concomitant]
  11. FUROSEMIDE [Concomitant]
  12. NIZATIDINE [Concomitant]
  13. MORPHINE [Concomitant]
  14. ORAMORPH [Concomitant]
  15. PARACETAMOL [Concomitant]
  16. PIZOTIFEN [Concomitant]
  17. GLYCERYL TRINITRATE [Concomitant]
  18. SALBUTAMOL [Concomitant]
  19. RIVAROXABAN [Concomitant]
  20. AMITRIPTYLINE [Concomitant]
  21. GABAPENTIN [Concomitant]
  22. PENICILLAMINE [Concomitant]
  23. SULFASALAZINE [Concomitant]

REACTIONS (5)
  - Tonsillar ulcer [None]
  - Cellulitis [None]
  - Staphylococcus test positive [None]
  - Blood culture positive [None]
  - Drug ineffective [None]
